FAERS Safety Report 4286381-0 (Version None)
Quarter: 2004Q1

REPORT INFORMATION
  Report Type: 
  Country: None (occurrence: None)
  Receive Date: 20040121
  Receipt Date: 20030509
  Transmission Date: 20041129
  Serious: Yes (Other)
  Sender: FDA-Public Use
  Company Number: A03200300990

PATIENT
  Age: 73 Year
  Sex: Female

DRUGS (4)
  1. PLAVIX [Suspect]
     Indication: CORONARY ARTERIAL STENT INSERTION
     Dosage: LOADING DOSE 300 MG FOLLOWED BY 75 MG/DAY-ORAL
     Route: 048
     Dates: start: 20030507
  2. METOPROLOL TARTRATE [Concomitant]
  3. ACETYLSALICYLIC ACID SRT [Concomitant]
  4. ATORVASTATIN [Concomitant]

REACTIONS (1)
  - ANGIONEUROTIC OEDEMA [None]
